FAERS Safety Report 13396913 (Version 4)
Quarter: 2018Q4

REPORT INFORMATION
  Report Type: Report from Study
  Country: US (occurrence: US)
  Receive Date: 20170403
  Receipt Date: 20181023
  Transmission Date: 20190204
  Serious: Yes (Hospitalization, Disabling, Other)
  Sender: FDA-Public Use
  Company Number: US-PFIZER INC-2016004986

PATIENT
  Age: 61 Year
  Sex: Male
  Weight: 164 kg

DRUGS (23)
  1. BOSULIF [Suspect]
     Active Substance: BOSUTINIB MONOHYDRATE
     Dosage: 100 MG, 3X/DAY
  2. CLOTRIMAZOLE. [Concomitant]
     Active Substance: CLOTRIMAZOLE
     Dosage: 3.2 %, UNK
     Route: 061
  3. NORVASC [Concomitant]
     Active Substance: AMLODIPINE BESYLATE
     Dosage: 10 MG, UNK
  4. LANTUS [Concomitant]
     Active Substance: INSULIN GLARGINE
     Dosage: 100 ML, UNK
  5. LISINOPRIL. [Concomitant]
     Active Substance: LISINOPRIL
     Dosage: 10 MG, UNK
  6. PROZAC [Concomitant]
     Active Substance: FLUOXETINE HYDROCHLORIDE
     Dosage: 10 MG, UNK
  7. BOSULIF [Suspect]
     Active Substance: BOSUTINIB MONOHYDRATE
     Dosage: 500 MG, UNK
  8. LORATADINE - D (ER 24 HR) [Concomitant]
     Dosage: LORATADINE 10MG, PSEUDOEPHEDRINE HYDROCHLORIDE 240MG
  9. LORATADINE. [Concomitant]
     Active Substance: LORATADINE
     Dosage: UNK
  10. BOSULIF [Suspect]
     Active Substance: BOSUTINIB MONOHYDRATE
     Dosage: 500 MG, DAILY
     Route: 048
     Dates: start: 201510
  11. BOSULIF [Suspect]
     Active Substance: BOSUTINIB MONOHYDRATE
     Dosage: 300 MG, DAILY
     Route: 048
     Dates: start: 20171012
  12. HUMALOG [Concomitant]
     Active Substance: INSULIN LISPRO
     Dosage: 100 ML, UNK
  13. TASIGNA [Suspect]
     Active Substance: NILOTINIB
     Indication: CHRONIC MYELOID LEUKAEMIA
     Dosage: 500 MG CAPSULES BY MOUTH DAILY
     Route: 048
     Dates: start: 2015, end: 201607
  14. GABAPENTIN. [Concomitant]
     Active Substance: GABAPENTIN
     Dosage: UNK
  15. BOSULIF [Suspect]
     Active Substance: BOSUTINIB MONOHYDRATE
     Dosage: 300 MG, DAILY (THREE; 100 MG)
     Route: 048
     Dates: start: 201604
  16. TERAZOSIN HCL [Concomitant]
     Active Substance: TERAZOSIN HYDROCHLORIDE
     Dosage: 10 MG, UNK
  17. METFORMIN HCL [Concomitant]
     Active Substance: METFORMIN HYDROCHLORIDE
     Dosage: UNK
  18. PRILOSEC [Concomitant]
     Active Substance: OMEPRAZOLE MAGNESIUM
     Dosage: 10 MG, UNK
  19. CLARITIN [Concomitant]
     Active Substance: LORATADINE
     Dosage: UNK
  20. BOSULIF [Suspect]
     Active Substance: BOSUTINIB MONOHYDRATE
     Indication: CHRONIC MYELOID LEUKAEMIA
     Dosage: 300 MG, DAILY
     Route: 048
     Dates: start: 201509
  21. BOSULIF [Suspect]
     Active Substance: BOSUTINIB MONOHYDRATE
     Dosage: 500 MG, DAILY
     Route: 048
     Dates: start: 20151001
  22. BOSULIF [Suspect]
     Active Substance: BOSUTINIB MONOHYDRATE
     Dosage: THREE 100 MG TABLETS BY MOUTH DAILY AT NIGHT TIME AFTER DINNER
     Route: 048
     Dates: start: 2015
  23. VITAMIN E [Concomitant]
     Active Substance: .ALPHA.-TOCOPHEROL
     Dosage: 1000 IU, UNK

REACTIONS (27)
  - Weight increased [Unknown]
  - Asthenia [Unknown]
  - Hot flush [Unknown]
  - Malaise [Unknown]
  - Rash macular [Unknown]
  - Peripheral swelling [Unknown]
  - Hair disorder [Not Recovered/Not Resolved]
  - Gait disturbance [Unknown]
  - Acute kidney injury [Unknown]
  - Diarrhoea [Unknown]
  - Fatigue [Unknown]
  - Blood glucose fluctuation [Unknown]
  - Acne [Not Recovered/Not Resolved]
  - Fluid retention [Unknown]
  - Rash [Unknown]
  - Weight decreased [Unknown]
  - Obsessive-compulsive disorder [Unknown]
  - Dizziness [Unknown]
  - Head discomfort [Not Recovered/Not Resolved]
  - Renal failure [Unknown]
  - Cardiac failure congestive [Unknown]
  - Pain in extremity [Unknown]
  - Oedema [Unknown]
  - Nausea [Unknown]
  - Arthritis bacterial [Recovering/Resolving]
  - Influenza [Unknown]
  - Cytogenetic abnormality [Not Recovered/Not Resolved]

NARRATIVE: CASE EVENT DATE: 20151002
